FAERS Safety Report 25453056 (Version 2)
Quarter: 2025Q3

REPORT INFORMATION
  Report Type: Report from Study
  Country: CA (occurrence: CA)
  Receive Date: 20250618
  Receipt Date: 20250710
  Transmission Date: 20251021
  Serious: Yes (Death, Other)
  Sender: HLS THERAPEUTICS
  Company Number: CA-HLS-202501446

PATIENT
  Age: 71 Year
  Sex: Male

DRUGS (2)
  1. CLOZARIL [Suspect]
     Active Substance: CLOZAPINE
     Indication: Product used for unknown indication
     Route: 048
     Dates: start: 20250128, end: 20250420
  2. WARFARIN [Concomitant]
     Active Substance: WARFARIN
     Indication: Product used for unknown indication
     Route: 065

REACTIONS (3)
  - Cardiac disorder [Fatal]
  - Pneumonia [Recovering/Resolving]
  - Weight decreased [Fatal]

NARRATIVE: CASE EVENT DATE: 20250401
